FAERS Safety Report 4567112-3 (Version None)
Quarter: 2005Q1

REPORT INFORMATION
  Report Type: 
  Country: None (occurrence: None)
  Receive Date: 20050201
  Receipt Date: 20050120
  Transmission Date: 20050727
  Serious: Yes (Other)
  Sender: FDA-Public Use
  Company Number: FR-JNJFOC-20041102035

PATIENT
  Sex: Male
  Weight: 37 kg

DRUGS (1)
  1. RISPERDAL [Suspect]
     Indication: DRUG USE FOR UNKNOWN INDICATION
     Route: 049

REACTIONS (5)
  - DYSPNOEA [None]
  - FATIGUE [None]
  - GAZE PALSY [None]
  - HYPOTENSION [None]
  - SYNCOPE VASOVAGAL [None]
